FAERS Safety Report 5300730-3 (Version None)
Quarter: 2007Q2

REPORT INFORMATION
  Report Type: 
  Country: None (occurrence: None)
  Receive Date: 20070418
  Receipt Date: 20070416
  Transmission Date: 20071010
  Serious: Yes (Other)
  Sender: FDA-Public Use
  Company Number: US-GENENTECH-231082

PATIENT
  Sex: Female
  Weight: 73.922 kg

DRUGS (1)
  1. RITUXAN [Suspect]
     Indication: B-CELL LYMPHOMA
     Dosage: 686 MG, Q3W
     Route: 042
     Dates: start: 20060714

REACTIONS (1)
  - MENINGITIS ASEPTIC [None]
